FAERS Safety Report 4948955-0 (Version None)
Quarter: 2006Q1

REPORT INFORMATION
  Report Type: 
  Country: None (occurrence: None)
  Receive Date: 20060315
  Receipt Date: 20060224
  Transmission Date: 20060701
  Serious: Yes (Hospitalization, Other)
  Sender: FDA-Public Use
  Company Number: USA050393259

PATIENT
  Age: 85 Year
  Sex: Female
  Weight: 45.4 kg

DRUGS (9)
  1. FORTEO [Suspect]
     Indication: OSTEOPOROSIS
     Dosage: 20 UG, DAILY (1/D),
     Dates: start: 20030904, end: 20050101
  2. FORTEO PEN, 250MCG/ML (3ML) (FORTEO PEN 250 MCG/ML (3ML)) PEN, DISPOSA [Concomitant]
  3. CALTRATE + D /00944201/ [Concomitant]
  4. COUMADIN [Concomitant]
  5. VASOTEC [Concomitant]
  6. TOPROL-XL [Concomitant]
  7. DILTIAZEM [Concomitant]
  8. MULTI-VITAMIN [Concomitant]
  9. DIGOXIN [Concomitant]

REACTIONS (3)
  - FALL [None]
  - HIP FRACTURE [None]
  - PHARMACEUTICAL PRODUCT COMPLAINT [None]
